FAERS Safety Report 11387186 (Version 1)
Quarter: 2015Q3

REPORT INFORMATION
  Report Type: Spontaneous
  Country: US (occurrence: US)
  Receive Date: 20150817
  Receipt Date: 20150817
  Transmission Date: 20151125
  Serious: No
  Sender: FDA-Public Use
  Company Number: US-ASTRAZENECA-2015SE75998

PATIENT
  Sex: Female
  Weight: 68 kg

DRUGS (3)
  1. BYDUREON [Suspect]
     Active Substance: EXENATIDE
     Indication: TYPE 2 DIABETES MELLITUS
     Route: 058
     Dates: start: 20150722
  2. LISINOPRIL. [Interacting]
     Active Substance: LISINOPRIL
     Indication: HYPERTENSION
     Route: 048
  3. WELLBUTRIN [Concomitant]
     Active Substance: BUPROPION HYDROCHLORIDE

REACTIONS (8)
  - Dizziness [Unknown]
  - Injection site irritation [Unknown]
  - Drug ineffective [Unknown]
  - Feeling abnormal [Unknown]
  - Injection site pruritus [Unknown]
  - Injection site erythema [Unknown]
  - Drug interaction [Unknown]
  - Head discomfort [Unknown]
